FAERS Safety Report 9557834 (Version 1)
Quarter: 2013Q3

REPORT INFORMATION
  Report Type: Spontaneous
  Country: US (occurrence: None)
  Receive Date: 20130724
  Receipt Date: 20130724
  Transmission Date: 20140515
  Serious: No
  Sender: FDA-Public Use
  Company Number: PHEH2013US005389

PATIENT
  Age: 48 Year
  Sex: Male
  Weight: 99.8 kg

DRUGS (6)
  1. GILENYA [Suspect]
     Indication: MULTIPLE SCLEROSIS
     Route: 048
     Dates: start: 20130213
  2. AMITRIPTYLIN (AMITRIPTYLINE HYDROCHLORIDE) [Concomitant]
  3. LUNESTA (ESZOPICLONE) [Concomitant]
  4. ZANAFLEX (TIZANIDINE HYDROCHLORIDE) [Concomitant]
  5. ZEBUTAL (BUTAZLBITAL, CAFFEINE, PARACETAMOL) [Concomitant]
  6. FIORICET (BUTALBITAL, CAFFEINE, PARACETAMOL) [Concomitant]

REACTIONS (6)
  - Influenza like illness [None]
  - Blood pressure decreased [None]
  - Dizziness [None]
  - Pyrexia [None]
  - Sinusitis [None]
  - Pulmonary congestion [None]
